FAERS Safety Report 5471700-X (Version None)
Quarter: 2007Q3

REPORT INFORMATION
  Report Type: 
  Country: None (occurrence: None)
  Receive Date: 20070928
  Receipt Date: 20070410
  Transmission Date: 20080115
  Serious: No
  Sender: FDA-Public Use
  Company Number: US-BRISTOL-MYERS SQUIBB COMPANY-13743794

PATIENT
  Age: 67 Year
  Sex: Female
  Weight: 123 kg

DRUGS (11)
  1. DEFINITY [Suspect]
     Indication: ECHOCARDIOGRAM
     Route: 042
     Dates: start: 20070410
  2. PLAVIX [Concomitant]
  3. LASIX [Concomitant]
  4. TOPROL-XL [Concomitant]
  5. PRINIVIL [Concomitant]
  6. ALDACTONE [Concomitant]
  7. PAXIL [Concomitant]
  8. OMEGA 3 FISH OIL [Concomitant]
  9. CLARITIN [Concomitant]
  10. ASPIRIN [Concomitant]
  11. VYTORIN [Concomitant]

REACTIONS (1)
  - BACK PAIN [None]
